FAERS Safety Report 16373285 (Version 2)
Quarter: 2019Q2

REPORT INFORMATION
  Report Type: Report from Study
  Country: US (occurrence: US)
  Receive Date: 20190530
  Receipt Date: 20190620
  Transmission Date: 20190711
  Serious: Yes (Other)
  Sender: FDA-Public Use
  Company Number: US-ACTELION-A-US2016-143862

PATIENT
  Age: 65 Year
  Sex: Female
  Weight: 69.84 kg

DRUGS (7)
  1. UPTRAVI [Suspect]
     Active Substance: SELEXIPAG
     Indication: PULMONARY ARTERIAL HYPERTENSION
     Dosage: 1000 MCG, BID
     Route: 048
  2. ADCIRCA [Concomitant]
     Active Substance: TADALAFIL
  3. UPTRAVI [Suspect]
     Active Substance: SELEXIPAG
     Dosage: 400 MCG, BID
     Route: 048
     Dates: start: 20160927
  4. LETAIRIS [Concomitant]
     Active Substance: AMBRISENTAN
  5. UPTRAVI [Suspect]
     Active Substance: SELEXIPAG
     Dosage: 600 MCG, BID
     Route: 048
  6. ELIQUIS [Concomitant]
     Active Substance: APIXABAN
  7. UPTRAVI [Suspect]
     Active Substance: SELEXIPAG
     Dosage: UNK
     Route: 048

REACTIONS (17)
  - Myocardial infarction [Unknown]
  - Feeling abnormal [Unknown]
  - Diarrhoea [Unknown]
  - Wrong dose [Unknown]
  - Palpitations [Unknown]
  - Myalgia [Unknown]
  - Pain [Unknown]
  - Sinusitis [Unknown]
  - Dyspnoea exertional [Unknown]
  - Chest pain [Unknown]
  - Headache [Unknown]
  - Dizziness [Unknown]
  - Arthralgia [Unknown]
  - Fluid retention [Unknown]
  - Weight increased [Unknown]
  - Insomnia [Unknown]
  - Ascites [Unknown]

NARRATIVE: CASE EVENT DATE: 20160927
